FAERS Safety Report 6590863-6 (Version None)
Quarter: 2010Q1

REPORT INFORMATION
  Report Type: 
  Country: None (occurrence: None)
  Receive Date: 20100219
  Receipt Date: 20100211
  Transmission Date: 20100710
  Serious: Yes (Other)
  Sender: FDA-Public Use
  Company Number: US-MERCK-0805USA00434

PATIENT
  Age: 50 Year
  Sex: Male

DRUGS (7)
  1. FOSAMAX PLUS D [Suspect]
     Indication: OSTEOPOROSIS
     Route: 048
     Dates: start: 20051201, end: 20070101
  2. FOSAMAX PLUS D [Suspect]
     Indication: BONE DENSITY DECREASED
     Route: 048
     Dates: start: 20051201, end: 20070101
  3. VALIUM [Concomitant]
     Route: 065
     Dates: start: 19730101
  4. PROVENTIL GENTLEHALER [Concomitant]
     Route: 065
     Dates: start: 19730101
  5. HORMONES (UNSPECIFIED) [Concomitant]
     Route: 065
     Dates: start: 19950101
  6. [THERAPY UNSPECIFIED] [Concomitant]
     Indication: BLOOD CHOLESTEROL DECREASED
     Route: 065
     Dates: start: 20040101
  7. FOSAMAX [Suspect]
     Route: 048
     Dates: start: 20070301, end: 20070701

REACTIONS (13)
  - ANGIOPATHY [None]
  - CHRONIC OBSTRUCTIVE PULMONARY DISEASE [None]
  - DENTAL CARIES [None]
  - EXOSTOSIS [None]
  - GINGIVAL INFECTION [None]
  - GRAND MAL CONVULSION [None]
  - IMPAIRED HEALING [None]
  - JAW DISORDER [None]
  - MASTICATION DISORDER [None]
  - OSTEONECROSIS [None]
  - SINUSITIS [None]
  - TOOTH DISORDER [None]
  - TOOTH INFECTION [None]
